FAERS Safety Report 20181330 (Version 1)
Quarter: 2021Q4

REPORT INFORMATION
  Report Type: Spontaneous
  Country: US (occurrence: US)
  Receive Date: 20211214
  Receipt Date: 20211214
  Transmission Date: 20220303
  Serious: No
  Sender: FDA-Public Use
  Company Number: US-GALDERMA-US2021019617

PATIENT

DRUGS (1)
  1. DIFFERIN GEL [Suspect]
     Active Substance: ADAPALENE
     Indication: Product used for unknown indication
     Dosage: 1 DOSAGE FORM
     Route: 061
     Dates: start: 202111

REACTIONS (6)
  - Skin burning sensation [Unknown]
  - Pain of skin [Unknown]
  - Skin irritation [Unknown]
  - Dry skin [Unknown]
  - Erythema [Unknown]
  - Sensitive skin [Unknown]
